FAERS Safety Report 10382147 (Version 1)
Quarter: 2014Q1

REPORT INFORMATION
  Report Type: Spontaneous
  Country: US (occurrence: None)
  Receive Date: 20140306
  Receipt Date: 20140306
  Transmission Date: 20141002
  Serious: Yes (Other)
  Sender: FDA-Public Use
  Company Number: 163-21880-13010298

PATIENT
  Age: 73 Year
  Sex: Female
  Weight: 70.76 kg

DRUGS (13)
  1. REVLIMID (LENALIDOMIDE) (10 MILLIGRAM, CAPSULES) [Suspect]
     Indication: PLASMA CELL MYELOMA
     Route: 048
     Dates: start: 20110427
  2. ACYCLOVIR (ACICLOVIR) (ACICLOVIR) [Concomitant]
  3. CALCIUM CITRATE-VITAMIN (CALCIUM CITRATE W/ VITMAIN D NOS) [Concomitant]
  4. CALTRATE 600 +D (CALCITE D) [Concomitant]
  5. MULTIVITAMINS (MULTIVITAMINS) [Concomitant]
  6. NEURONTIN (GABAPENTIN) [Concomitant]
  7. OMEPRAZOLE [Concomitant]
  8. SIMVASTATIN [Concomitant]
  9. TYLENOL (PARACETAMOL) [Concomitant]
  10. FLU SHOT (INFLUENZA VACCINE) [Concomitant]
  11. WARFARIN SODIUM [Concomitant]
  12. CLARITIN (LORATADINE) [Concomitant]
  13. LEVOXYL (LEVOTHRYOXINE SODIUM) [Concomitant]

REACTIONS (3)
  - Blood disorder [None]
  - Diarrhoea [None]
  - Cough [None]
